FAERS Safety Report 4313705-8 (Version None)
Quarter: 2004Q1

REPORT INFORMATION
  Report Type: 
  Country: None (occurrence: None)
  Receive Date: 20040305
  Receipt Date: 20040212
  Transmission Date: 20041129
  Serious: Yes (Other)
  Sender: FDA-Public Use
  Company Number: 200411413BWH

PATIENT
  Age: 46 Year
  Sex: Male
  Weight: 77.1115 kg

DRUGS (10)
  1. CIPRO [Suspect]
     Indication: PROPHYLAXIS
     Dosage: 1000 MG, TOTAL DAILY, ORAL
     Route: 048
     Dates: start: 20031029, end: 20031201
  2. CIPRO [Suspect]
     Indication: PROPHYLAXIS AGAINST TRANSPLANT REJECTION
     Dosage: 1000 MG, TOTAL DAILY, ORAL
     Route: 048
     Dates: start: 20031029, end: 20031201
  3. CIPRO [Suspect]
     Indication: URETHRAL STENT INSERTION
     Dosage: 1000 MG, TOTAL DAILY, ORAL
     Route: 048
     Dates: start: 20031029, end: 20031201
  4. CYCLOSPORINE [Concomitant]
  5. CELLCEPT [Concomitant]
  6. PREDNISONE [Concomitant]
  7. LOPRESSOR [Concomitant]
  8. LIPITOR [Concomitant]
  9. CYTOVENE [Concomitant]
  10. METHYLPREDNISOLONE [Concomitant]

REACTIONS (4)
  - PAIN IN EXTREMITY [None]
  - PLANTAR FASCIITIS [None]
  - TENDONITIS [None]
  - TRANSPLANT REJECTION [None]
